FAERS Safety Report 12296836 (Version 1)
Quarter: 2016Q2

REPORT INFORMATION
  Report Type: Spontaneous
  Country: PL (occurrence: PL)
  Receive Date: 20160422
  Receipt Date: 20160422
  Transmission Date: 20160815
  Serious: Yes (Other)
  Sender: FDA-Public Use
  Company Number: PHHY2016PL045519

PATIENT
  Age: 29 Year
  Sex: Female

DRUGS (1)
  1. OMEPRAZOL [Suspect]
     Active Substance: OMEPRAZOLE
     Indication: GASTROOESOPHAGEAL REFLUX DISEASE
     Dosage: 20 MG, QD
     Route: 065

REACTIONS (1)
  - Gastrooesophageal heterotopia [Recovering/Resolving]
